FAERS Safety Report 4760217-3 (Version None)
Quarter: 2005Q3

REPORT INFORMATION
  Report Type: 
  Country: None (occurrence: None)
  Receive Date: 20050902
  Receipt Date: 20050822
  Transmission Date: 20060218
  Serious: Yes (Other)
  Sender: FDA-Public Use
  Company Number: US-JNJFOC-20050805450

PATIENT
  Sex: Male
  Weight: 110.22 kg

DRUGS (1)
  1. TOPAMAX [Suspect]
     Indication: WEIGHT LOSS DIET
     Route: 048
     Dates: start: 20050501, end: 20050501

REACTIONS (4)
  - FAECAL INCONTINENCE [None]
  - HAEMORRHOIDS [None]
  - OCULAR HYPERAEMIA [None]
  - SURGERY [None]
